FAERS Safety Report 8473166-4 (Version None)
Quarter: 2012Q2

REPORT INFORMATION
  Report Type: 
  Country: None (occurrence: None)
  Receive Date: 20120627
  Receipt Date: 20120622
  Transmission Date: 20120825
  Serious: Yes (Hospitalization)
  Sender: FDA-Public Use
  Company Number: PHHY2012JP053582

PATIENT
  Age: 6 Year
  Sex: Female

DRUGS (5)
  1. PREDNISOLONE [Concomitant]
     Dosage: 15 MG/DAY
  2. PREDNISOLONE [Concomitant]
     Dosage: 4.5 MG/DAY
  3. CYCLOSPORINE [Suspect]
     Indication: INTERSTITIAL LUNG DISEASE
     Dosage: 5 MG/KG/DAY
  4. PREDNISOLONE [Concomitant]
     Dosage: 6.5 MG/DAY
  5. CYCLOSPORINE [Suspect]
     Indication: DERMATOMYOSITIS

REACTIONS (5)
  - AUTOIMMUNE THROMBOCYTOPENIA [None]
  - ANAEMIA [None]
  - EPISTAXIS [None]
  - PETECHIAE [None]
  - THROMBOCYTOPENIA [None]
